FAERS Safety Report 9634550 (Version 1)
Quarter: 2013Q4

REPORT INFORMATION
  Report Type: Spontaneous
  Country: US (occurrence: US)
  Receive Date: 20131021
  Receipt Date: 20131021
  Transmission Date: 20140711
  Serious: No
  Sender: FDA-Public Use
  Company Number: US-PURDUE-USA-2013-0101434

PATIENT
  Sex: Female

DRUGS (2)
  1. BUTRANS [Suspect]
     Indication: PAIN
     Dosage: 20 MCG/HR, 1/WEEK
     Route: 062
     Dates: start: 201210, end: 20130421
  2. VICODIN [Concomitant]
     Indication: BREAKTHROUGH PAIN
     Dosage: 1 TABLET (10/325MG), Q4H
     Route: 048

REACTIONS (6)
  - Application site discolouration [Not Recovered/Not Resolved]
  - Blood pressure increased [Unknown]
  - Application site rash [Not Recovered/Not Resolved]
  - Application site pain [Not Recovered/Not Resolved]
  - Application site pruritus [Not Recovered/Not Resolved]
  - Application site erosion [Not Recovered/Not Resolved]
